FAERS Safety Report 5944220-3 (Version None)
Quarter: 2008Q4

REPORT INFORMATION
  Report Type: 
  Country: None (occurrence: None)
  Receive Date: 20081104
  Receipt Date: 20081023
  Transmission Date: 20090506
  Serious: Yes (Hospitalization)
  Sender: FDA-Public Use
  Company Number: 2008-04014

PATIENT
  Age: 58 Year
  Sex: Male
  Weight: 72.8 kg

DRUGS (11)
  1. VELCADE [Suspect]
     Indication: MULTIPLE MYELOMA
     Dosage: 0.8 MG/M2,; 1.3 MG/M2,
     Dates: start: 20031030
  2. VELCADE [Suspect]
     Indication: MULTIPLE MYELOMA
     Dosage: 0.8 MG/M2,; 1.3 MG/M2,
     Dates: start: 20040526
  3. DEXAMETHASONE TAB [Suspect]
     Indication: MULTIPLE MYELOMA
     Dosage: 20 MG,; 40 MG
     Dates: start: 20031030
  4. DEXAMETHASONE TAB [Suspect]
     Indication: MULTIPLE MYELOMA
     Dosage: 20 MG,; 40 MG
     Dates: start: 20040526
  5. THALIDOMIDE [Suspect]
     Indication: MULTIPLE MYELOMA
     Dosage: 50 MG,; 100 MG,
     Dates: start: 20031030
  6. THALIDOMIDE [Suspect]
     Indication: MULTIPLE MYELOMA
     Dosage: 50 MG,; 100 MG,
     Dates: start: 20040526
  7. CISPLATIN [Suspect]
     Indication: MULTIPLE MYELOMA
     Dosage: 10 MG/M2, INTRAVENOUS
     Route: 042
     Dates: start: 20040526
  8. ADRIAMYCIN PFS [Suspect]
     Indication: MULTIPLE MYELOMA
     Dosage: 5 MG/M2,; 10 MG/M2,
     Dates: start: 20031030
  9. ADRIAMYCIN PFS [Suspect]
     Indication: MULTIPLE MYELOMA
     Dosage: 5 MG/M2,; 10 MG/M2,
     Dates: start: 20040526
  10. CYCLOPHOSPHAMIDE [Suspect]
     Indication: MULTIPLE MYELOMA
     Dosage: 400 MG/M2,
     Dates: start: 20040526
  11. ETOPOSIDE [Suspect]
     Indication: MULTIPLE MYELOMA
     Dosage: 40 MG/M2,
     Dates: start: 20040526

REACTIONS (10)
  - AMNESIA [None]
  - DIARRHOEA [None]
  - DISEASE PROGRESSION [None]
  - HAEMOGLOBIN DECREASED [None]
  - HYPOAESTHESIA [None]
  - PARAESTHESIA [None]
  - PNEUMONIA [None]
  - PULMONARY EMBOLISM [None]
  - SEPTIC EMBOLUS [None]
  - THROMBOPHLEBITIS SEPTIC [None]
